FAERS Safety Report 23222830 (Version 1)
Quarter: 2023Q4

REPORT INFORMATION
  Report Type: Report from Study
  Country: US (occurrence: US)
  Receive Date: 20231123
  Receipt Date: 20231123
  Transmission Date: 20240110
  Serious: Yes (Hospitalization)
  Sender: FDA-Public Use
  Company Number: US-UCBSA-2023055177

PATIENT
  Age: 32 Year
  Sex: Female

DRUGS (3)
  1. KEPPRA [Interacting]
     Active Substance: LEVETIRACETAM
     Indication: Seizure
     Dosage: 1250, 2X/DAY (BID)
  2. ATIVAN [Interacting]
     Active Substance: LORAZEPAM
     Indication: Seizure
     Dosage: UNK
  3. VALIUM [Interacting]
     Active Substance: DIAZEPAM
     Indication: Seizure
     Dosage: UNK

REACTIONS (4)
  - Seizure [Unknown]
  - Insomnia [Unknown]
  - Drug interaction [Unknown]
  - Drug ineffective [Unknown]
